FAERS Safety Report 4973237-0 (Version None)
Quarter: 2006Q2

REPORT INFORMATION
  Report Type: 
  Country: None (occurrence: None)
  Receive Date: 20060407
  Receipt Date: 20060324
  Transmission Date: 20061013
  Serious: Yes (Hospitalization)
  Sender: FDA-Public Use
  Company Number: 13783

PATIENT
  Age: 68 Year
  Sex: Female
  Weight: 57 kg

DRUGS (8)
  1. FLUOROURACIL [Suspect]
     Indication: BREAST CANCER
     Dosage: 900 MG PER_CYCLE IV
     Route: 042
     Dates: start: 20060124
  2. METHOTREXATE [Suspect]
     Dosage: 75 MG PER_CYCLE IV
     Route: 042
     Dates: start: 20060124
  3. CYCLOPHOSPHAMIDE [Suspect]
     Indication: BREAST CANCER
     Dosage: 1200 MG PER_CYCLE IV
     Route: 042
     Dates: start: 20060124
  4. BECLOMETHASONE DIPROPIONATE [Concomitant]
  5. SALBUTAMOL [Concomitant]
  6. LOSARTAN POTASSIUM [Concomitant]
  7. OMEPRAZOLE [Concomitant]
  8. EPIRUBICIN [Concomitant]

REACTIONS (2)
  - NEUTROPENIC SEPSIS [None]
  - PRODUCTIVE COUGH [None]
